FAERS Safety Report 8597056-1 (Version None)
Quarter: 2012Q3

REPORT INFORMATION
  Report Type: 
  Country: None (occurrence: None)
  Receive Date: 20120816
  Receipt Date: 20120806
  Transmission Date: 20120928
  Serious: Yes (Hospitalization)
  Sender: FDA-Public Use
  Company Number: US-BIOGENIDEC-2011BI044537

PATIENT
  Age: 48 Year
  Sex: Female

DRUGS (1)
  1. TYSABRI [Suspect]
     Indication: MULTIPLE SCLEROSIS
     Route: 042
     Dates: start: 20110915, end: 20111122

REACTIONS (4)
  - THROMBOSIS IN DEVICE [None]
  - DEVICE RELATED INFECTION [None]
  - URINARY TRACT INFECTION [None]
  - PYREXIA [None]
